FAERS Safety Report 6374310-5 (Version None)
Quarter: 2009Q3

REPORT INFORMATION
  Report Type: 
  Country: None (occurrence: None)
  Receive Date: 20090924
  Receipt Date: 20090914
  Transmission Date: 20100115
  Serious: Yes (Other)
  Sender: FDA-Public Use
  Company Number: SE-ASTRAZENECA-2009SE12924

PATIENT
  Age: 64 Year
  Sex: Female

DRUGS (1)
  1. PLENDIL [Suspect]
     Indication: SECONDARY HYPERTENSION
     Route: 048
     Dates: end: 20070330

REACTIONS (8)
  - ANXIETY [None]
  - HYPOACUSIS [None]
  - INFARCTION [None]
  - NAUSEA [None]
  - PRURITUS [None]
  - RASH [None]
  - TREMOR [None]
  - VERTIGO [None]
